FAERS Safety Report 13023446 (Version 1)
Quarter: 2016Q4

REPORT INFORMATION
  Report Type: Spontaneous
  Country: US (occurrence: US)
  Receive Date: 20161213
  Receipt Date: 20161213
  Transmission Date: 20170207
  Serious: Yes (Other)
  Sender: FDA-Public Use
  Company Number: US-ASTRAZENECA-2016SF29461

PATIENT
  Sex: Female

DRUGS (2)
  1. CLONAZEPAM. [Suspect]
     Active Substance: CLONAZEPAM
     Route: 065
  2. CRESTOR [Suspect]
     Active Substance: ROSUVASTATIN CALCIUM
     Indication: DIARRHOEA
     Dosage: 10.0MG UNKNOWN
     Route: 048

REACTIONS (7)
  - Off label use [Unknown]
  - Movement disorder [Unknown]
  - Tremor [Unknown]
  - Facial spasm [Unknown]
  - Seizure [Unknown]
  - Muscle spasms [Unknown]
  - Product use issue [Unknown]
